FAERS Safety Report 12975302 (Version 1)
Quarter: 2016Q4

REPORT INFORMATION
  Report Type: Spontaneous
  Country: US (occurrence: US)
  Receive Date: 20161124
  Receipt Date: 20161124
  Transmission Date: 20170207
  Serious: Yes (Hospitalization)
  Sender: FDA-Public Use
  Company Number: None

PATIENT
  Age: 72 Year
  Sex: Female
  Weight: 95.85 kg

DRUGS (9)
  1. VIBERZI [Suspect]
     Active Substance: ELUXADOLINE
     Indication: IRRITABLE BOWEL SYNDROME
     Route: 048
     Dates: start: 20161118, end: 20161118
  2. BENICAR [Concomitant]
     Active Substance: OLMESARTAN MEDOXOMIL
  3. ATENOLOL. [Concomitant]
     Active Substance: ATENOLOL
  4. CHERRY JUICE CONCENTRATE [Concomitant]
  5. COLCRYS [Concomitant]
     Active Substance: COLCHICINE
  6. FISH OIL [Concomitant]
     Active Substance: FISH OIL
  7. METFORMIN [Concomitant]
     Active Substance: METFORMIN HYDROCHLORIDE
  8. JANUVIA [Concomitant]
     Active Substance: SITAGLIPTIN PHOSPHATE
  9. ULORIC [Concomitant]
     Active Substance: FEBUXOSTAT

REACTIONS (8)
  - Abdominal pain upper [None]
  - Dry mouth [None]
  - Yawning [None]
  - Discomfort [None]
  - Fatigue [None]
  - Thirst [None]
  - Pancreatitis [None]
  - Chest discomfort [None]

NARRATIVE: CASE EVENT DATE: 20161118
